FAERS Safety Report 5899059-4 (Version None)
Quarter: 2008Q3

REPORT INFORMATION
  Report Type: 
  Country: None (occurrence: None)
  Receive Date: 20080925
  Receipt Date: 20080912
  Transmission Date: 20090109
  Serious: Yes (Other)
  Sender: FDA-Public Use
  Company Number: US-ELI_LILLY_AND_COMPANY-US200804000172

PATIENT
  Sex: Male

DRUGS (11)
  1. STRATTERA [Suspect]
     Indication: ATTENTION DEFICIT/HYPERACTIVITY DISORDER
     Dosage: 18 MG, UNK
  2. STRATTERA [Suspect]
     Dosage: 25 MG, UNK
  3. STRATTERA [Suspect]
     Dosage: 40 MG, UNK
  4. STRATTERA [Suspect]
     Dosage: 60 MG, UNK
  5. STRATTERA [Suspect]
     Dosage: 100 MG, DAILY (1/D)
     Dates: start: 20080319, end: 20080301
  6. STRATTERA [Suspect]
     Dosage: 80 MG, UNK
     Dates: start: 20080324
  7. ZOLOFT [Concomitant]
  8. KLONOPIN [Concomitant]
  9. FLOMAX [Concomitant]
  10. SIMVASTATIN [Concomitant]
  11. PREVACID [Concomitant]

REACTIONS (4)
  - DIZZINESS [None]
  - DRUG INEFFECTIVE [None]
  - GAIT DISTURBANCE [None]
  - WEIGHT DECREASED [None]
